FAERS Safety Report 9139503 (Version 2)
Quarter: 2013Q2

REPORT INFORMATION
  Report Type: Spontaneous
  Country: US (occurrence: US)
  Receive Date: 20130305
  Receipt Date: 20130424
  Transmission Date: 20140414
  Serious: Yes (Death)
  Sender: FDA-Public Use
  Company Number: US-JNJFOC-20130217443

PATIENT
  Age: 42 Year
  Sex: Male
  Weight: 65.77 kg

DRUGS (2)
  1. BENADRYL ALLERGY [Suspect]
     Indication: ARTHROPOD BITE
     Dosage: 6-12 TABLETS TAKEN 2X
     Route: 048
     Dates: start: 20130113, end: 20130114
  2. AN UNKNOWN MEDICATION [Suspect]
     Indication: ARTHROPOD BITE
     Route: 065

REACTIONS (3)
  - Overdose [Fatal]
  - Off label use [Unknown]
  - Therapeutic response unexpected [Unknown]
